FAERS Safety Report 6535471-8 (Version None)
Quarter: 2010Q1

REPORT INFORMATION
  Report Type: 
  Country: None (occurrence: None)
  Receive Date: 20100111
  Receipt Date: 20100111
  Transmission Date: 20100710
  Serious: Yes (Life-Threatening, Hospitalization, Disabling, Other)
  Sender: FDA-Public Use
  Company Number: None

PATIENT
  Age: 84 Year
  Sex: Male

DRUGS (1)
  1. KETOCONAZOLE [Suspect]
     Indication: PROSTATE CANCER
     Dosage: 200MG 3X DAY PO
     Route: 048
     Dates: start: 20090903, end: 20090924

REACTIONS (3)
  - DIALYSIS [None]
  - RENAL DISORDER [None]
  - RHABDOMYOLYSIS [None]
